FAERS Safety Report 8058553-0 (Version None)
Quarter: 2012Q1

REPORT INFORMATION
  Report Type: 
  Country: None (occurrence: None)
  Receive Date: 20120120
  Receipt Date: 20120117
  Transmission Date: 20120608
  Serious: Yes (Other)
  Sender: FDA-Public Use
  Company Number: US-PFIZER INC-2012003092

PATIENT
  Sex: Male

DRUGS (1)
  1. PROTONIX [Suspect]
     Dosage: 40 MG, 1X/DAY
     Route: 048

REACTIONS (9)
  - CELLULITIS [None]
  - SLEEP APNOEA SYNDROME [None]
  - CHEST DISCOMFORT [None]
  - STENT PLACEMENT [None]
  - SKIN DISCOLOURATION [None]
  - MYOCARDIAL INFARCTION [None]
  - DYSPNOEA [None]
  - ASTHENIA [None]
  - HYPOAESTHESIA [None]
